FAERS Safety Report 8469349 (Version 2)
Quarter: 2013Q3

REPORT INFORMATION
  Report Type: Spontaneous
  Country: FI (occurrence: FI)
  Receive Date: 20120321
  Receipt Date: 20130911
  Transmission Date: 20140515
  Serious: Yes (Other)
  Sender: FDA-Public Use
  Company Number: FI-JNJFOC-20120307724

PATIENT
  Age: 50 Year
  Sex: Male

DRUGS (3)
  1. RISPERDAL CONSTA [Suspect]
     Indication: SCHIZOPHRENIA
     Route: 030
  2. RISPERDAL [Suspect]
     Indication: SCHIZOPHRENIA
     Route: 048
  3. AN UNKNOWN MEDICATION [Concomitant]
     Route: 065

REACTIONS (6)
  - Eye haemorrhage [Unknown]
  - Myalgia [Unknown]
  - Loss of libido [Unknown]
  - Weight increased [Unknown]
  - Musculoskeletal pain [Not Recovered/Not Resolved]
  - Blood pressure increased [Unknown]
